FAERS Safety Report 9247214 (Version 2)
Quarter: 2013Q2

REPORT INFORMATION
  Report Type: Spontaneous
  Country: US (occurrence: US)
  Receive Date: 20130423
  Receipt Date: 20130524
  Transmission Date: 20140414
  Serious: No
  Sender: FDA-Public Use
  Company Number: US-BIOGENIDEC-2013BI035628

PATIENT
  Age: 65 Year
  Sex: Male

DRUGS (15)
  1. TYSABRI [Suspect]
     Indication: MULTIPLE SCLEROSIS
     Route: 042
     Dates: start: 200801, end: 200912
  2. TYSABRI [Suspect]
     Indication: MULTIPLE SCLEROSIS
     Route: 042
     Dates: start: 201004, end: 201205
  3. TYSABRI [Suspect]
     Indication: MULTIPLE SCLEROSIS
     Route: 042
     Dates: start: 20121219
  4. AVONEX [Concomitant]
     Indication: MULTIPLE SCLEROSIS
     Route: 030
     Dates: start: 20060311
  5. AVONEX [Concomitant]
     Indication: MULTIPLE SCLEROSIS
     Route: 030
  6. GABAPENTIN [Concomitant]
     Indication: TREMOR
  7. LYRICA [Concomitant]
     Indication: TREMOR
  8. NAMENDA [Concomitant]
     Indication: TREMOR
  9. COENZYME Q10 [Concomitant]
     Indication: TREMOR
  10. KLONOPIN [Concomitant]
     Indication: TREMOR
  11. LAMICTAL [Concomitant]
     Indication: TREMOR
  12. KEPPRA [Concomitant]
     Indication: TREMOR
  13. SOLUMEDROL [Concomitant]
     Indication: PRODUCT USED FOR UNKNOWN INDICATION
     Route: 042
  14. ANTIBIOTIC [Concomitant]
     Indication: URINARY TRACT INFECTION
  15. DEXAMETHASONE [Concomitant]
     Indication: PRODUCT USED FOR UNKNOWN INDICATION

REACTIONS (1)
  - Drug ineffective [Not Recovered/Not Resolved]
